FAERS Safety Report 6730308-6 (Version None)
Quarter: 2010Q2

REPORT INFORMATION
  Report Type: 
  Country: None (occurrence: None)
  Receive Date: 20100514
  Receipt Date: 20100504
  Transmission Date: 20101027
  Serious: Yes (Hospitalization, Other)
  Sender: FDA-Public Use
  Company Number: 1000012718

PATIENT
  Age: 76 Year
  Sex: Male
  Weight: 79.0166 kg

DRUGS (7)
  1. NEBIVOLOL HCL [Suspect]
     Indication: HYPERTENSION
     Dosage: 5 MG, ORAL
     Route: 048
     Dates: start: 20081227, end: 20090128
  2. AXITINIB [Suspect]
     Indication: METASTATIC RENAL CELL CARCINOMA
     Dosage: 6 MG (3 MG, 2 IN 1 D), ORAL
     Route: 048
     Dates: start: 20081225, end: 20090128
  3. NORVASC [Suspect]
     Dosage: ORAL
     Route: 048
     Dates: start: 20081229
  4. IRBESARTAN [Suspect]
     Route: 048
     Dates: start: 20081229
  5. LASIX [Concomitant]
  6. HYDROCHLOROTHIAZIDE [Concomitant]
  7. GLIMEPIRIDE [Concomitant]

REACTIONS (7)
  - BLOOD CREATININE INCREASED [None]
  - BRADYCARDIA [None]
  - FATIGUE [None]
  - HAEMOGLOBIN DECREASED [None]
  - HYPERKALAEMIA [None]
  - HYPOTHYROIDISM [None]
  - WHITE BLOOD CELL COUNT INCREASED [None]
